FAERS Safety Report 12203545 (Version 1)
Quarter: 2016Q1

REPORT INFORMATION
  Report Type: Spontaneous
  Country: US (occurrence: US)
  Receive Date: 20160323
  Receipt Date: 20160323
  Transmission Date: 20160526
  Serious: No
  Sender: FDA-Public Use
  Company Number: US-BAYER-2016-047528

PATIENT
  Age: 58 Year
  Sex: Female
  Weight: 49.89 kg

DRUGS (3)
  1. CLARITIN [Suspect]
     Active Substance: LORATADINE
     Dosage: UNK
     Dates: start: 2016
  2. BENADRYL [Concomitant]
     Active Substance: DIPHENHYDRAMINE HYDROCHLORIDE
     Indication: RASH
     Dosage: 2 TEASPOONS
     Dates: start: 2016
  3. CENTRUM [MINERALS NOS,VITAMINS NOS] [Concomitant]
     Dosage: 2 DF, UNK
     Route: 048
     Dates: start: 2016

REACTIONS (2)
  - Product use issue [None]
  - Drug ineffective for unapproved indication [None]

NARRATIVE: CASE EVENT DATE: 2016
